FAERS Safety Report 16031690 (Version 2)
Quarter: 2020Q1

REPORT INFORMATION
  Report Type: Spontaneous
  Country: BR (occurrence: BR)
  Receive Date: 20190304
  Receipt Date: 20200319
  Transmission Date: 20200409
  Serious: Yes (Other)
  Sender: FDA-Public Use
  Company Number: BR-PFIZER INC-2013003516

PATIENT
  Age: 61 Year
  Sex: Male
  Weight: 58 kg

DRUGS (23)
  1. LYRICA [Suspect]
     Active Substance: PREGABALIN
     Dosage: 150 MG
     Route: 048
  2. AMITRYL [Suspect]
     Active Substance: AMITRIPTYLINE HYDROCHLORIDE
     Indication: NEURALGIA
     Dosage: ONE TABLET (25 MG), 1X/DAY (AT NIGHT, BEFORE SLEEPING)
  3. ARAVA [Concomitant]
     Active Substance: LEFLUNOMIDE
     Dosage: UNK
     Dates: start: 201103
  4. ATENOLOL. [Concomitant]
     Active Substance: ATENOLOL
     Indication: BLOOD PRESSURE INCREASED
     Dosage: ONE TABLET (25 MG), DAILY
     Dates: start: 1983
  5. DEPURA [Suspect]
     Active Substance: CHOLECALCIFEROL
     Dosage: 1 DF, DAILY
  6. LYRICA [Suspect]
     Active Substance: PREGABALIN
     Indication: NEURALGIA
     Dosage: 4 CAPSULES OF 150MG (600 MG), 2X/DAY (EVERY 12 HOURS)
     Route: 048
     Dates: start: 2012
  7. LYRICA [Suspect]
     Active Substance: PREGABALIN
     Dosage: 150MG 1X/DAY
     Route: 048
     Dates: start: 201210
  8. LYRICA [Suspect]
     Active Substance: PREGABALIN
     Dosage: 300 MG, 2X/DAY
     Route: 048
  9. LYRICA [Suspect]
     Active Substance: PREGABALIN
     Dosage: 150 MG, 4 TABLETS A DAY
     Route: 048
     Dates: start: 2014
  10. SINVASTACOR [Concomitant]
     Active Substance: SIMVASTATIN
     Indication: BLOOD CHOLESTEROL ABNORMAL
     Dosage: ONE TABLET (40 MG), DAILY
     Dates: start: 2013
  11. PRELONE [Concomitant]
     Active Substance: PREDNISOLONE
     Indication: RHEUMATOID ARTHRITIS
     Dosage: 1 TABLET (5 MG) PER DAY
     Dates: start: 2011
  12. PRELONE [Concomitant]
     Active Substance: PREDNISOLONE
     Indication: ARTHRITIS
  13. ENBREL [Concomitant]
     Active Substance: ETANERCEPT
     Indication: ARTHRITIS
  14. LYRICA [Suspect]
     Active Substance: PREGABALIN
     Dosage: 300 MG, 1X/DAY
     Route: 048
  15. BRASART HCT [Concomitant]
     Active Substance: HYDROCHLOROTHIAZIDE\VALSARTAN
     Indication: BLOOD PRESSURE INCREASED
     Dosage: ONE TABLET (2.5 MG), 2X/DAY (IN THE MORNING AND AT NIGHT)
     Dates: start: 201408
  16. ETNA [Concomitant]
     Active Substance: UNSPECIFIED INGREDIENT
     Indication: PAIN
     Dosage: 1 TABLET (UNSPECIFIED DOSE), 2X/DAY
     Dates: start: 2015
  17. LYRICA [Suspect]
     Active Substance: PREGABALIN
     Dosage: 225MG 1X/DAY
     Route: 048
  18. LYRICA [Suspect]
     Active Substance: PREGABALIN
     Dosage: UNSPECIFIED DOSAGE, 3X/DAY
     Route: 048
  19. ENBREL [Concomitant]
     Active Substance: ETANERCEPT
     Indication: RHEUMATOID ARTHRITIS
     Dosage: 50 MG, WEEKLY
     Route: 058
     Dates: start: 201509
  20. LYRICA [Suspect]
     Active Substance: PREGABALIN
     Indication: BURSITIS
     Dosage: 75 MG, 1X/DAY
     Route: 048
  21. PRESSAT [Concomitant]
     Active Substance: AMLODIPINE BESYLATE
     Indication: BLOOD PRESSURE INCREASED
     Dosage: ONE TABLET (2.5 MG), DAILY
  22. DRUSOLOL [Concomitant]
     Active Substance: DORZOLAMIDE HYDROCHLORIDE\TIMOLOL MALEATE
  23. DUOMO [Concomitant]
     Active Substance: DOXAZOSIN MESYLATE

REACTIONS (11)
  - Insomnia [Recovered/Resolved]
  - Overdose [Unknown]
  - Weight increased [Not Recovered/Not Resolved]
  - Intentional product use issue [Unknown]
  - Drug ineffective [Recovered/Resolved]
  - Dizziness [Recovered/Resolved]
  - Vitamin D decreased [Unknown]
  - Joint swelling [Unknown]
  - Drug dependence [Unknown]
  - Cataract [Unknown]
  - Pain [Unknown]

NARRATIVE: CASE EVENT DATE: 2012
